FAERS Safety Report 5832602-X (Version None)
Quarter: 2008Q3

REPORT INFORMATION
  Report Type: 
  Country: None (occurrence: None)
  Receive Date: 20080804
  Receipt Date: 20080724
  Transmission Date: 20090109
  Serious: Yes (Hospitalization, Other)
  Sender: FDA-Public Use
  Company Number: BE-PFIZER INC-2008062384

PATIENT
  Sex: Female
  Weight: 59 kg

DRUGS (2)
  1. SU-011,248 [Suspect]
     Indication: BREAST CANCER
     Route: 048
  2. DOCETAXEL [Suspect]
     Indication: BREAST CANCER
     Route: 042
     Dates: start: 20080307, end: 20080711

REACTIONS (1)
  - PNEUMOPERITONEUM [None]
